FAERS Safety Report 8270403-6 (Version None)
Quarter: 2012Q2

REPORT INFORMATION
  Report Type: 
  Country: None (occurrence: None)
  Receive Date: 20120410
  Receipt Date: 20120405
  Transmission Date: 20120825
  Serious: No
  Sender: FDA-Public Use
  Company Number: US-BAYER-2012-034200

PATIENT
  Age: 79 Year
  Sex: Male
  Weight: 79 kg

DRUGS (8)
  1. ACETAMINOPHEN W/DIPHENHYDRAMINE HYDROCHLORIDE [Concomitant]
  2. FISH OIL [Concomitant]
  3. LOVASTATIN [Concomitant]
  4. ALEVE (CAPLET) [Suspect]
     Indication: ANALGESIC THERAPY
     Dosage: 2, ONCE DAILY
     Route: 048
  5. ATENOLOL [Concomitant]
  6. ALEVE (CAPLET) [Suspect]
     Dosage: 2, ONCE DAILY
     Route: 048
  7. ASPIRIN [Concomitant]
  8. LIPOFLAVONOID [Concomitant]

REACTIONS (1)
  - NO ADVERSE EVENT [None]
